FAERS Safety Report 4897150-2 (Version None)
Quarter: 2006Q1

REPORT INFORMATION
  Report Type: 
  Country: None (occurrence: None)
  Receive Date: 20060131
  Receipt Date: 20060103
  Transmission Date: 20060701
  Serious: Yes (Hospitalization, Disabling, Other)
  Sender: FDA-Public Use
  Company Number: US-MERCK-0601USA00168

PATIENT
  Age: 60 Year
  Sex: Male
  Weight: 77 kg

DRUGS (10)
  1. CALTRATE [Concomitant]
     Route: 048
     Dates: start: 20000101
  2. FOSAMAX [Concomitant]
     Indication: OSTEOPOROSIS
     Route: 048
     Dates: start: 20000101
  3. CENTRUM SILVER [Concomitant]
     Route: 048
     Dates: start: 20000101
  4. MEPHYTON [Concomitant]
     Route: 048
  5. CLONAZEPAM [Concomitant]
     Indication: SLEEP DISORDER THERAPY
     Route: 048
     Dates: start: 19950101
  6. SINGULAIR [Suspect]
     Indication: RHINITIS ALLERGIC
     Route: 048
     Dates: start: 20051201, end: 20051228
  7. SINGULAIR [Suspect]
     Route: 048
     Dates: start: 20050101, end: 20050101
  8. SINGULAIR [Suspect]
     Indication: HYPERSENSITIVITY
     Route: 048
     Dates: start: 20051201, end: 20051228
  9. SINGULAIR [Suspect]
     Route: 048
     Dates: start: 20050101, end: 20050101
  10. QUESTRAN [Concomitant]
     Route: 065

REACTIONS (3)
  - BLOOD SODIUM DECREASED [None]
  - COLITIS ISCHAEMIC [None]
  - HAEMOGLOBIN DECREASED [None]
